FAERS Safety Report 5080330-3 (Version None)
Quarter: 2006Q3

REPORT INFORMATION
  Report Type: 
  Country: None (occurrence: None)
  Receive Date: 20060815
  Receipt Date: 20060727
  Transmission Date: 20061208
  Serious: Yes (Other)
  Sender: FDA-Public Use
  Company Number: PHHO2006CH12027

PATIENT
  Age: 23 Year
  Sex: Female
  Weight: 76 kg

DRUGS (4)
  1. CERTICAN [Suspect]
     Indication: RENAL TRANSPLANT
  2. MYFORTIC [Suspect]
     Indication: RENAL TRANSPLANT
     Dosage: 1440 MG / DAY
     Route: 048
     Dates: start: 20060405, end: 20060720
  3. SANDIMMUNE [Suspect]
     Indication: RENAL TRANSPLANT
     Dosage: 225 MG/DAILY
     Route: 048
     Dates: start: 20060405
  4. PREDNISONE [Suspect]
     Indication: RENAL TRANSPLANT
     Dosage: 12.5 MG, QD
     Route: 048
     Dates: start: 20060409

REACTIONS (2)
  - CYTOMEGALOVIRUS INFECTION [None]
  - NEUTROPENIA [None]
